FAERS Safety Report 6415595-6 (Version None)
Quarter: 2009Q4

REPORT INFORMATION
  Report Type: 
  Country: None (occurrence: None)
  Receive Date: 20091027
  Receipt Date: 20091021
  Transmission Date: 20100525
  Serious: Yes (Hospitalization, Other)
  Sender: FDA-Public Use
  Company Number: TR-ROXANE LABORATORIES, INC.-2009-RO-01083RO

PATIENT
  Age: 8 Year
  Sex: Male

DRUGS (2)
  1. RISPERIDONE [Suspect]
     Indication: AGITATION
     Dosage: 0.25 MG
  2. RISPERIDONE [Suspect]
     Indication: SLEEP DISORDER

REACTIONS (6)
  - HEADACHE [None]
  - NAUSEA [None]
  - SINUS ARREST [None]
  - SINUS BRADYCARDIA [None]
  - SYNCOPE [None]
  - VOMITING [None]
